FAERS Safety Report 9967835 (Version 2)
Quarter: 2014Q1

REPORT INFORMATION
  Report Type: Spontaneous
  Country: US (occurrence: US)
  Receive Date: 20140306
  Receipt Date: 20140306
  Transmission Date: 20141002
  Serious: Yes (Death)
  Sender: FDA-Public Use
  Company Number: US-ROCHE-1348360

PATIENT
  Age: 62 Year
  Sex: Female

DRUGS (7)
  1. XELODA [Suspect]
     Indication: BREAST CANCER
     Route: 048
     Dates: start: 20130330
  2. XELODA [Suspect]
     Dosage: 14 DAYS ON 7 DAYS OFF
     Route: 048
     Dates: start: 20130622
  3. OMEPRAZOLE [Concomitant]
  4. ATENOLOL [Concomitant]
  5. HYDROCHLOROTHIAZIDE [Concomitant]
  6. METOCLOPRAMIDE [Concomitant]
  7. XARELTO [Concomitant]

REACTIONS (2)
  - Palmar-plantar erythrodysaesthesia syndrome [Unknown]
  - Death [Fatal]
